FAERS Safety Report 7584001-0 (Version None)
Quarter: 2011Q2

REPORT INFORMATION
  Report Type: 
  Country: None (occurrence: None)
  Receive Date: 20110623
  Receipt Date: 20110614
  Transmission Date: 20111010
  Serious: Yes (Death, Life-Threatening, Hospitalization)
  Sender: FDA-Public Use
  Company Number: 2010AC000048

PATIENT
  Age: 71 Year
  Sex: Female

DRUGS (31)
  1. GEMFIBROZIL [Concomitant]
  2. NEXIUM [Concomitant]
  3. COZAAR [Concomitant]
  4. ATROPINE [Concomitant]
  5. DIGOXIN [Suspect]
     Indication: ATRIAL FIBRILLATION
     Dosage: IV
     Route: 042
     Dates: start: 20071106, end: 20071101
  6. GUAIFENESIN [Concomitant]
  7. LIDOCAINE [Concomitant]
  8. MAGNESIUM [Concomitant]
  9. COMPAZINE [Concomitant]
  10. PLAVIX [Concomitant]
  11. VYTORIN [Concomitant]
  12. COLESTID [Concomitant]
  13. ZYRTEC [Concomitant]
  14. ISOSORBIDE [Concomitant]
  15. WELLBUTRIN [Concomitant]
  16. TOPROL-XL [Concomitant]
  17. SODIUM BICARBONATE [Concomitant]
  18. LEVOTHYROXINE SODIUM [Concomitant]
  19. POTASSIUM [Concomitant]
  20. HYDONE [Concomitant]
  21. PROTONIX [Concomitant]
  22. COSAMIN [Concomitant]
  23. LASIX [Concomitant]
  24. ALTACE [Concomitant]
  25. CELEBREX [Concomitant]
  26. CARAFATE [Concomitant]
  27. DIGOXIN [Suspect]
     Dosage: 0.25 MG;QD;PO
     Route: 048
     Dates: start: 20071101, end: 20071118
  28. NITROGLYCERINV [Concomitant]
  29. AMIODARONE HCL [Concomitant]
  30. DOBUTAMINE HCL [Concomitant]
  31. EPINEHRINE [Concomitant]

REACTIONS (45)
  - PAIN [None]
  - ATRIOVENTRICULAR BLOCK FIRST DEGREE [None]
  - ATRIAL FIBRILLATION [None]
  - HYPERTENSION [None]
  - ATRIAL FLUTTER [None]
  - UNRESPONSIVE TO STIMULI [None]
  - CARDIAC ARREST [None]
  - CONGESTIVE CARDIOMYOPATHY [None]
  - HYPOTENSION [None]
  - COELIAC ARTERY STENOSIS [None]
  - VOMITING [None]
  - RENAL FAILURE [None]
  - ANXIETY [None]
  - PYREXIA [None]
  - INJURY [None]
  - HAEMATOCHEZIA [None]
  - HYPOKINESIA [None]
  - GASTRIC ULCER [None]
  - DIARRHOEA [None]
  - TOXICITY TO VARIOUS AGENTS [None]
  - HEART RATE IRREGULAR [None]
  - ANHEDONIA [None]
  - DISEASE RECURRENCE [None]
  - BILIARY DILATATION [None]
  - OEDEMA PERIPHERAL [None]
  - BRADYCARDIA [None]
  - RENAL ARTERY STENOSIS [None]
  - DIZZINESS [None]
  - HYDROTHORAX [None]
  - CIRCULATORY COLLAPSE [None]
  - VENTRICULAR TACHYCARDIA [None]
  - MYOCARDIAL INFARCTION [None]
  - ECONOMIC PROBLEM [None]
  - HEPATIC ENZYME INCREASED [None]
  - PULMONARY HYPERTENSION [None]
  - HYPERDYNAMIC LEFT VENTRICLE [None]
  - SYNCOPE [None]
  - ABDOMINAL PAIN [None]
  - NAUSEA [None]
  - WHITE BLOOD CELL COUNT INCREASED [None]
  - NODAL RHYTHM [None]
  - ISCHAEMIC HEPATITIS [None]
  - PULSELESS ELECTRICAL ACTIVITY [None]
  - DIVERTICULUM INTESTINAL [None]
  - SHOCK [None]
